FAERS Safety Report 21654626 (Version 1)
Quarter: 2022Q4

REPORT INFORMATION
  Report Type: Spontaneous
  Country: TR (occurrence: TR)
  Receive Date: 20221129
  Receipt Date: 20221129
  Transmission Date: 20230112
  Serious: Yes (Other)
  Sender: FDA-Public Use
  Company Number: TR-002147023-NVSC2022TR266022

PATIENT
  Sex: Male

DRUGS (1)
  1. AZOPT [Suspect]
     Active Substance: BRINZOLAMIDE
     Indication: Glaucoma
     Dosage: 2X1 (MORNING AND EVENING) (START DATE FOR 10 YEARS) (FORMULATION SOLUTION) (% 1 5 ML OPTHALMIC SOLUT
     Route: 047

REACTIONS (5)
  - Blindness [Recovering/Resolving]
  - Cataract [Unknown]
  - Strabismus [Unknown]
  - Product supply issue [Unknown]
  - Dry eye [Unknown]
